FAERS Safety Report 25087963 (Version 1)
Quarter: 2025Q1

REPORT INFORMATION
  Report Type: Spontaneous
  Country: US (occurrence: US)
  Receive Date: 20250318
  Receipt Date: 20250318
  Transmission Date: 20250409
  Serious: No
  Sender: MERCK SHARP & DOHME LLC
  Company Number: US-PFIZER INC-202500024826

PATIENT
  Age: 67 Year
  Sex: Female

DRUGS (2)
  1. TUKYSA [Suspect]
     Active Substance: TUCATINIB
     Indication: Breast cancer female
     Dosage: DOSE DESCRIPTION : TWO 150MG TABLETS, TWICE DAILY?DAILY DOSE : 600 MILLIGRAM?CONCENTRATION: 150 M...
     Route: 048
  2. CAPECITABINE [Concomitant]
     Active Substance: CAPECITABINE

REACTIONS (2)
  - Off label use [Unknown]
  - Product use issue [Unknown]
